FAERS Safety Report 23580891 (Version 4)
Quarter: 2024Q2

REPORT INFORMATION
  Report Type: Spontaneous
  Country: US (occurrence: US)
  Receive Date: 20240229
  Receipt Date: 20240506
  Transmission Date: 20240717
  Serious: Yes (Death, Hospitalization, Other)
  Sender: FDA-Public Use
  Company Number: US-BRISTOL-MYERS SQUIBB COMPANY-2024-032693

PATIENT
  Age: 76 Year
  Sex: Male

DRUGS (13)
  1. POMALYST [Suspect]
     Active Substance: POMALIDOMIDE
     Indication: Plasma cell myeloma
     Dosage: DOSE : 1 MG; FREQUENCY : ONCE DAILY ON 21 DAYS AND OFF 7 DAYS/DAILY 1-21 OF 28 DAY CYCLE
     Route: 048
     Dates: start: 20180115
  2. DARZALEX FASPRO [Concomitant]
     Active Substance: DARATUMUMAB\HYALURONIDASE-FIHJ
     Indication: Plasma cell myeloma
     Dosage: Q28
     Route: 058
  3. SEROQUEL [Concomitant]
     Active Substance: QUETIAPINE FUMARATE
     Indication: Product used for unknown indication
     Dosage: TAKE 1/2 TABLET ONCE A DAY AT BED TIME
     Route: 048
  4. POTASSIUM CHLORIDE [Concomitant]
     Active Substance: POTASSIUM CHLORIDE
     Indication: Hypokalaemia
     Dosage: TAKE 1 TAB (20MEQ TOTAL) BY MOUTH 1(ONE) TIME EACH DAY
     Route: 048
  5. ZOVIRAX [Concomitant]
     Active Substance: ACYCLOVIR
     Indication: Herpes simplex
     Dosage: TAKE 1 TABLET (400 MG TOTAL) BY MOUTH IN THE MORNING AND 1 TABLET (400 MG TOTAL) IN THE EVENING.
     Route: 048
  6. XANAX [Concomitant]
     Active Substance: ALPRAZOLAM
     Indication: Anxiety
     Dosage: TAKE 1 TABLET (1 MG 60 TABLET TOTAL) BY MOUTH 3 (THREE) TIMES A DAY IF NEEDED FOR ANXIETY.
     Route: 048
  7. PROTONIX [Concomitant]
     Active Substance: PANTOPRAZOLE SODIUM
     Indication: Gastrointestinal disorder
     Dosage: TAKE 1 TABLET (40 MG TOTAL) BY MOUTH IN THE MORNING AND 1 TABLET ?(40 MG TOTAL) IN THE EVENING.
     Route: 048
  8. DECADRON [Concomitant]
     Active Substance: DEXAMETHASONE
     Indication: Plasma cell myeloma
     Dosage: TAKE 5 TABLETS (20 MG TOTAL) BY MOUTH EVERY 7 (SEVEN) DAYS ?FOR 3 DOSES. TAKE 20 MG TOTAL ON DAYS OF
     Route: 048
  9. DECADRON [Concomitant]
     Active Substance: DEXAMETHASONE
     Dosage: TAKE 5 TABLETS (20 MG TOTAL) BY MOUTH EVERY 7 (SEVEN) DAYS ?FOR 3 DOSES. TAKE 20 MG TOTAL ON DAYS OF
     Route: 048
  10. TOPROL XL [Concomitant]
     Active Substance: METOPROLOL SUCCINATE
     Indication: Blood pressure abnormal
     Dosage: TAKE I TABLET (25 MG TOTAL) BY MOUTH 1 (ONE) TIME EACH DAY.
     Route: 048
  11. TOPROL XL [Concomitant]
     Active Substance: METOPROLOL SUCCINATE
     Indication: Heart rate abnormal
  12. COMPAZINE [Concomitant]
     Active Substance: PROCHLORPERAZINE MALEATE
     Indication: Nausea
     Dosage: TAKE 10MG TAB BY MOUTH EVERY 6 HR IF NEEDED
     Route: 048
  13. CALCIUM CARBONATE\VITAMIN D [Concomitant]
     Active Substance: CALCIUM CARBONATE\VITAMIN D
     Indication: Product used for unknown indication
     Dosage: 600-20 MG- MCG TABLET (TAKE 2 TABLETS BY MOUTH IN THE MORNING AND 2 TABLETS BEFORE BEDTIME.)
     Route: 048

REACTIONS (8)
  - Cardiac arrest [Fatal]
  - Iron deficiency anaemia [Unknown]
  - Lumbar vertebral fracture [Unknown]
  - Myelodysplastic syndrome [Unknown]
  - Thrombocytopenia [Unknown]
  - Paraesthesia [Unknown]
  - Oral pain [Unknown]
  - Small intestinal haemorrhage [Unknown]

NARRATIVE: CASE EVENT DATE: 20210301
